FAERS Safety Report 8791904 (Version 1)
Quarter: 2012Q4

REPORT INFORMATION
  Report Type: 
  Country: GB (occurrence: GB)
  Receive Date: 20120918
  Receipt Date: 20120918
  Transmission Date: 20130627
  Serious: Yes (Hospitalization)
  Sender: FDA-Public Use
  Company Number: GB-TEVA-357726ISR

PATIENT
  Age: 62 Year
  Sex: Male
  Weight: 103 kg

DRUGS (12)
  1. INDAPAMIDE [Suspect]
     Dates: start: 20120803
  2. AMLODIPINE [Concomitant]
     Dates: start: 20120515
  3. FLUTICASONE PROPIONATE [Concomitant]
     Dates: start: 20120515, end: 20120612
  4. METFORMIN [Concomitant]
     Dates: start: 20120515
  5. OMEPRAZOLE [Concomitant]
     Dates: start: 20120515
  6. PRAVASTATIN [Concomitant]
     Dates: start: 20120515
  7. SITAGLIPTIN [Concomitant]
     Dates: start: 20120515
  8. FLUCLOXACILLIN [Concomitant]
     Dates: start: 20120618, end: 20120625
  9. LOCERYL [Concomitant]
     Dates: start: 20120618, end: 20120716
  10. RANITIDINE [Concomitant]
     Dates: start: 20120618, end: 20120718
  11. CHLORPHENAMINE [Concomitant]
     Dates: start: 20120813
  12. HYDROCORTISONE [Concomitant]
     Dates: start: 20120813

REACTIONS (3)
  - Urticaria [Not Recovered/Not Resolved]
  - Drug reaction with eosinophilia and systemic symptoms [Not Recovered/Not Resolved]
  - Drug hypersensitivity [Not Recovered/Not Resolved]
